FAERS Safety Report 5647123-7 (Version None)
Quarter: 2008Q1

REPORT INFORMATION
  Report Type: 
  Country: None (occurrence: None)
  Receive Date: 20080131
  Receipt Date: 20071204
  Transmission Date: 20080703
  Serious: No
  Sender: FDA-Public Use
  Company Number: 163-21880-07120270

PATIENT
  Age: 34 Year
  Sex: Female
  Weight: 68.0396 kg

DRUGS (10)
  1. REVLIMID [Suspect]
     Indication: MULTIPLE MYELOMA
     Dosage: 10 MG, 1 IN 1 D, ORAL
     Route: 048
     Dates: start: 20070117
  2. AMBIEN [Concomitant]
  3. PROZAC [Concomitant]
  4. XANAX [Concomitant]
  5. LORTAB [Concomitant]
  6. MIDRIN (MIDRID) [Concomitant]
  7. POTASSIUM CHLORIDE [Concomitant]
  8. ATARAX [Concomitant]
  9. CALCIUM WITH VITAMIN D (CALCIUM WITH VITAMIN D) [Concomitant]
  10. ALLEGRA-D (ALLEGRA-D) [Concomitant]

REACTIONS (1)
  - SINUSITIS [None]
